FAERS Safety Report 7368907-3 (Version None)
Quarter: 2011Q1

REPORT INFORMATION
  Report Type: 
  Country: None (occurrence: None)
  Receive Date: 20110323
  Receipt Date: 20110120
  Transmission Date: 20110831
  Serious: Yes (Hospitalization)
  Sender: FDA-Public Use
  Company Number: US-BAYER-201023173NA

PATIENT
  Sex: Female
  Weight: 68.027 kg

DRUGS (11)
  1. AMOXICILLIN [Concomitant]
  2. ALEVE [Concomitant]
  3. YAZ [Suspect]
     Indication: PREMENSTRUAL SYNDROME
     Dosage: UNK UNK, QD
     Route: 048
     Dates: start: 20080915, end: 20081104
  4. ZITHROMAX [Concomitant]
  5. YAZ [Suspect]
     Indication: CONTRACEPTION
     Dosage: UNK UNK, QD
     Route: 048
     Dates: start: 20070501, end: 20091115
  6. IMITREX [Concomitant]
     Dosage: UNK UNK, PRN
     Dates: start: 20090301
  7. MOTRIN [Concomitant]
  8. YAZ [Suspect]
  9. ZOMIG [Concomitant]
     Dosage: UNK
     Dates: start: 20090301
  10. WOMENS ULTRA MEGA [Concomitant]
     Indication: VITAMIN SUPPLEMENTATION
     Dosage: UNK UNK, QD
  11. LEVLEN 28 [Concomitant]

REACTIONS (2)
  - PAIN [None]
  - CHOLECYSTITIS [None]
